FAERS Safety Report 21295408 (Version 2)
Quarter: 2022Q3

REPORT INFORMATION
  Report Type: Report from Study
  Country: BE (occurrence: BE)
  Receive Date: 20220905
  Receipt Date: 20220912
  Transmission Date: 20221027
  Serious: Yes (Hospitalization, Other)
  Sender: FDA-Public Use
  Company Number: BE-ABBVIE-22K-013-4524899-00

PATIENT
  Sex: Female
  Weight: 64 kg

DRUGS (9)
  1. CARBIDOPA\LEVODOPA [Suspect]
     Active Substance: CARBIDOPA\LEVODOPA
     Indication: Parkinson^s disease
     Route: 050
     Dates: start: 20170227
  2. CARBIDOPA\LEVODOPA [Suspect]
     Active Substance: CARBIDOPA\LEVODOPA
     Dosage: MD 4.0 ML; CD 3.7 ML/HR DURING 16 HOURS; ED 3.0 ML
     Route: 050
     Dates: start: 20220830
  3. AZILECT [Concomitant]
     Active Substance: RASAGILINE MESYLATE
     Indication: Product used for unknown indication
     Dosage: AT 7.30 HOUR
  4. BENSERAZIDE\LEVODOPA [Concomitant]
     Active Substance: BENSERAZIDE\LEVODOPA
     Indication: Product used for unknown indication
     Dosage: AT 15.00 - 18.00 HOUR
  5. BENSERAZIDE\LEVODOPA [Concomitant]
     Active Substance: BENSERAZIDE\LEVODOPA
     Indication: Product used for unknown indication
     Dosage: AT 21.00 -24.00 HOUR
  6. REQUIP [Concomitant]
     Active Substance: ROPINIROLE HYDROCHLORIDE
     Indication: Product used for unknown indication
     Dosage: AT 7.30- 10.00 HOUR
  7. STALEVO [Concomitant]
     Active Substance: CARBIDOPA\ENTACAPONE\LEVODOPA
     Indication: Product used for unknown indication
     Dosage: 7.30-10.00-12.00 HOUR
  8. CALCIUM [Concomitant]
     Active Substance: CALCIUM
     Indication: Product used for unknown indication
     Dosage: AT 12.00- 18.00 HOUR
  9. DAFLON [Concomitant]
     Indication: Product used for unknown indication
     Dosage: AT 12.00- 18.00 HOUR

REACTIONS (3)
  - Hip fracture [Recovering/Resolving]
  - Fall [Unknown]
  - Dyskinesia [Unknown]

NARRATIVE: CASE EVENT DATE: 20220701
